FAERS Safety Report 19007442 (Version 2)
Quarter: 2021Q1

REPORT INFORMATION
  Report Type: Report from Study
  Country: GB (occurrence: GB)
  Receive Date: 20210315
  Receipt Date: 20210317
  Transmission Date: 20210420
  Serious: Yes (Death)
  Sender: FDA-Public Use
  Company Number: GB-PFIZER INC-2021272277

PATIENT
  Sex: Male

DRUGS (4)
  1. CYTARABINE. [Suspect]
     Active Substance: CYTARABINE
     Indication: BING-NEEL SYNDROME
     Dosage: UNK, CYCLIC
  2. THIOTEPA. [Suspect]
     Active Substance: THIOTEPA
     Indication: BING-NEEL SYNDROME
     Dosage: UNK, CYCLIC
  3. RITUXIMAB. [Suspect]
     Active Substance: RITUXIMAB
     Indication: BING-NEEL SYNDROME
     Dosage: UNK, CYCLIC
  4. METHOTREXATE SODIUM. [Suspect]
     Active Substance: METHOTREXATE SODIUM
     Indication: BING-NEEL SYNDROME
     Dosage: UNK, CYCLIC,  (HIGH DOSE)

REACTIONS (1)
  - Toxicity to various agents [Fatal]
